FAERS Safety Report 18262034 (Version 1)
Quarter: 2020Q3

REPORT INFORMATION
  Report Type: Spontaneous
  Country: FR (occurrence: FR)
  Receive Date: 20200914
  Receipt Date: 20200914
  Transmission Date: 20201103
  Serious: Yes (Death, Life-Threatening, Hospitalization)
  Sender: FDA-Public Use
  Company Number: NVSC2020FR249945

PATIENT
  Age: 88 Year
  Sex: Female
  Weight: 58 kg

DRUGS (3)
  1. ENALAPRIL MALEATE. [Suspect]
     Active Substance: ENALAPRIL MALEATE
     Indication: HYPERTENSION
     Dosage: 1 DF, QD
     Route: 048
     Dates: start: 202002, end: 20200504
  2. LASILIX [Interacting]
     Active Substance: FUROSEMIDE
     Indication: HYPERTENSION
     Dosage: 40 MG, QD
     Route: 048
     Dates: start: 202002, end: 20200504
  3. LERCANIDIPINE HYDROCHLORIDE [Interacting]
     Active Substance: LERCANIDIPINE HYDROCHLORIDE
     Indication: HYPERTENSION
     Dosage: 1 DF, QD
     Route: 048
     Dates: start: 202002, end: 20200504

REACTIONS (2)
  - Acute kidney injury [Fatal]
  - Condition aggravated [Fatal]

NARRATIVE: CASE EVENT DATE: 20200504
